FAERS Safety Report 5745548-2 (Version None)
Quarter: 2008Q2

REPORT INFORMATION
  Report Type: 
  Country: None (occurrence: None)
  Receive Date: 20080521
  Receipt Date: 20080513
  Transmission Date: 20081010
  Serious: Yes (Hospitalization, Other)
  Sender: FDA-Public Use
  Company Number: FR-PFIZER INC-2008041355

PATIENT
  Sex: Female
  Weight: 69 kg

DRUGS (3)
  1. GENOTONORM [Suspect]
     Indication: HYPOPITUITARISM
     Dosage: DAILY DOSE:.3MG-FREQ:DAILY
  2. DESMOPRESSIN ACETATE [Concomitant]
     Dosage: DAILY DOSE:.2MG-FREQ:DAILY
     Route: 048
  3. VARNOLINE [Concomitant]
     Dosage: TEXT:1 TABLET-FREQ:DAILY
     Route: 048

REACTIONS (1)
  - PITUITARY TUMOUR BENIGN [None]
